FAERS Safety Report 6429328-0 (Version None)
Quarter: 2009Q4

REPORT INFORMATION
  Report Type: 
  Country: None (occurrence: None)
  Receive Date: 20091029
  Receipt Date: 20091023
  Transmission Date: 20100525
  Serious: Yes (Other)
  Sender: FDA-Public Use
  Company Number: 2009SP025468

PATIENT
  Age: 81 Year
  Sex: Female

DRUGS (3)
  1. INTEGRILIN [Suspect]
     Indication: ANGIOPLASTY
     Dosage: ONCE; IV
     Route: 042
  2. INTEGRILIN [Suspect]
     Indication: MYOCARDIAL INFARCTION
     Dosage: ONCE; IV
     Route: 042
  3. UNFRACTIONED HEPARIN [Concomitant]

REACTIONS (4)
  - CATHETER SITE DISCHARGE [None]
  - DRUG SPECIFIC ANTIBODY PRESENT [None]
  - PETECHIAE [None]
  - THROMBOCYTOPENIA [None]
